FAERS Safety Report 6913920-0 (Version None)
Quarter: 2010Q3

REPORT INFORMATION
  Report Type: 
  Country: None (occurrence: None)
  Receive Date: 20100809
  Receipt Date: 20100803
  Transmission Date: 20110219
  Serious: Yes (Other)
  Sender: FDA-Public Use
  Company Number: US-WYE-H15485410

PATIENT
  Age: 60 Year
  Sex: Female
  Weight: 52.21 kg

DRUGS (1)
  1. PRISTIQ [Suspect]
     Indication: DEPRESSION
     Route: 048
     Dates: start: 20090916, end: 20091001

REACTIONS (6)
  - ARTHRALGIA [None]
  - DRUG WITHDRAWAL SYNDROME [None]
  - JOINT SWELLING [None]
  - LOSS OF CONSCIOUSNESS [None]
  - NAUSEA [None]
  - TINNITUS [None]
